FAERS Safety Report 4959630-0 (Version None)
Quarter: 2006Q1

REPORT INFORMATION
  Report Type: 
  Country: None (occurrence: None)
  Receive Date: 20060331
  Receipt Date: 20050928
  Transmission Date: 20060701
  Serious: Yes (Hospitalization, Disabling)
  Sender: FDA-Public Use
  Company Number: US-ROCHE-419587

PATIENT
  Age: 15 Year
  Sex: Female
  Weight: 52.2 kg

DRUGS (3)
  1. ACCUTANE [Suspect]
     Route: 048
     Dates: start: 20010925, end: 20011211
  2. ACCUTANE [Suspect]
     Route: 048
     Dates: start: 20020110
  3. ORTHO TRI-CYCLEN [Concomitant]
     Route: 048

REACTIONS (24)
  - ANAEMIA [None]
  - ANOREXIA [None]
  - ANXIETY [None]
  - CLOSTRIDIUM COLITIS [None]
  - COLITIS [None]
  - COLITIS ULCERATIVE [None]
  - CONFUSIONAL STATE [None]
  - CROHN'S DISEASE [None]
  - DEHYDRATION [None]
  - DEPRESSION [None]
  - DIZZINESS [None]
  - DYSPNOEA [None]
  - GASTROINTESTINAL DISORDER [None]
  - HEADACHE [None]
  - INFLAMMATORY BOWEL DISEASE [None]
  - INTESTINAL HAEMORRHAGE [None]
  - IRRITABLE BOWEL SYNDROME [None]
  - MIGRAINE [None]
  - MULTI-ORGAN DISORDER [None]
  - PARAESTHESIA [None]
  - STRESS [None]
  - TONSILLITIS [None]
  - TREMOR [None]
  - VISION BLURRED [None]
